FAERS Safety Report 13199661 (Version 4)
Quarter: 2017Q2

REPORT INFORMATION
  Report Type: Spontaneous
  Country: BR (occurrence: BR)
  Receive Date: 20170208
  Receipt Date: 20170501
  Transmission Date: 20170830
  Serious: Yes (Other)
  Sender: FDA-Public Use
  Company Number: ALCN2017BR001180

PATIENT
  Age: 93 Year
  Sex: Female
  Weight: 64 kg

DRUGS (6)
  1. SYSTANE BALANCE [Suspect]
     Active Substance: PROPYLENE GLYCOL
     Indication: DRY EYE
     Dosage: 1 GTT, UNK
     Route: 047
     Dates: start: 20170202, end: 20170202
  2. GLIFAGE [Concomitant]
     Active Substance: METFORMIN HYDROCHLORIDE
     Indication: DIABETES MELLITUS
     Dosage: 2 DF, QD
     Route: 065
     Dates: start: 20150903
  3. COVERDILOL [Concomitant]
     Indication: ANGINA PECTORIS
     Dosage: UNK UNK, BID
     Route: 065
     Dates: start: 20160203
  4. RIVOTRIL [Concomitant]
     Active Substance: CLONAZEPAM
     Indication: DEPRESSION
     Dosage: 3 GTT, QD
     Route: 065
     Dates: start: 20160203
  5. LOSARTAN. [Concomitant]
     Active Substance: LOSARTAN
     Indication: HYPERTENSION
     Dosage: UNK UNK, TID
     Route: 065
     Dates: start: 20160203
  6. SERTRALINE [Concomitant]
     Active Substance: SERTRALINE HYDROCHLORIDE
     Indication: DEPRESSION
     Dosage: 1 GTT, QD
     Route: 065
     Dates: start: 20160203

REACTIONS (3)
  - Vision blurred [Recovered/Resolved]
  - Product quality issue [Unknown]
  - Eye irritation [Recovered/Resolved]

NARRATIVE: CASE EVENT DATE: 20170202
